FAERS Safety Report 22030731 (Version 1)
Quarter: 2023Q1

REPORT INFORMATION
  Report Type: Spontaneous
  Country: IT (occurrence: None)
  Receive Date: 20230223
  Receipt Date: 20230223
  Transmission Date: 20230417
  Serious: Yes (Life-Threatening, Hospitalization, Other)
  Sender: FDA-Public Use
  Company Number: None

PATIENT
  Age: 65 Year
  Sex: Female

DRUGS (2)
  1. LENVIMA [Suspect]
     Active Substance: LENVATINIB
     Indication: Papillary thyroid cancer
     Route: 048
     Dates: start: 20230102, end: 20230125
  2. LEVOTHYROXINE SODIUM [Concomitant]
     Active Substance: LEVOTHYROXINE SODIUM
     Indication: Product used for unknown indication
     Dosage: 100 MCG SATURDAY AND SUNDAY AND 125 MCG MONDAY THROUGH FRIDAY
     Route: 048

REACTIONS (7)
  - Joint dislocation pathological [Recovering/Resolving]
  - Pathological fracture [Recovering/Resolving]
  - Epilepsy [Recovered/Resolved]
  - Encephalopathy [Recovering/Resolving]
  - Headache [Recovered/Resolved]
  - Motor dysfunction [Recovering/Resolving]
  - Neck pain [Recovered/Resolved]

NARRATIVE: CASE EVENT DATE: 20230123
